FAERS Safety Report 4442873-2 (Version None)
Quarter: 2004Q3

REPORT INFORMATION
  Report Type: 
  Country: None (occurrence: None)
  Receive Date: 20040903
  Receipt Date: 20040525
  Transmission Date: 20050211
  Serious: Yes (Other)
  Sender: FDA-Public Use
  Company Number: 2004UW10953

PATIENT
  Age: 74 Year
  Sex: Male
  Weight: 88.4514 kg

DRUGS (9)
  1. CRESTOR [Suspect]
     Dosage: 10 MG PO
     Route: 048
     Dates: start: 20040201
  2. CRESTOR [Suspect]
     Dosage: 10 MG PO
     Route: 048
     Dates: start: 20040101
  3. PLAVIX [Concomitant]
  4. NITROCAP [Concomitant]
  5. ZETIA [Concomitant]
  6. TOPROL-XL [Concomitant]
  7. ACCUPRIL [Concomitant]
  8. FOLGARD [Concomitant]
  9. PROTONIX [Concomitant]

REACTIONS (2)
  - BLISTER [None]
  - RASH PRURITIC [None]
